FAERS Safety Report 12082594 (Version 1)
Quarter: 2016Q1

REPORT INFORMATION
  Report Type: Spontaneous
  Country: US (occurrence: None)
  Receive Date: 20160212
  Receipt Date: 20160212
  Transmission Date: 20160526
  Serious: No
  Sender: FDA-Public Use
  Company Number: None

PATIENT
  Age: 37 Year
  Sex: Female

DRUGS (1)
  1. ACTICLATE [Suspect]
     Active Substance: DOXYCYCLINE HYCLATE
     Indication: ROSACEA
     Route: 048
     Dates: start: 20160126, end: 20160209

REACTIONS (4)
  - Insomnia [None]
  - Headache [None]
  - Nausea [None]
  - Influenza like illness [None]

NARRATIVE: CASE EVENT DATE: 20160211
